FAERS Safety Report 9329706 (Version 2)
Quarter: 2013Q4

REPORT INFORMATION
  Report Type: Spontaneous
  Country: US (occurrence: US)
  Receive Date: 20130604
  Receipt Date: 20131119
  Transmission Date: 20140711
  Serious: Yes (Hospitalization)
  Sender: FDA-Public Use
  Company Number: US-B.I. PHARMACEUTICALS,INC./RIDGEFIELD-2013-BI-15455BP

PATIENT
  Age: 65 Year
  Sex: Male
  Weight: 85.73 kg

DRUGS (8)
  1. PRADAXA [Suspect]
     Indication: ANTICOAGULANT THERAPY
     Dosage: 300 MG
     Dates: start: 20121121, end: 20121130
  2. PRADAXA [Suspect]
     Indication: ATRIAL FLUTTER
  3. AMIODARONE [Concomitant]
     Dosage: 400 MG
     Dates: start: 2002, end: 2012
  4. LIPITOR [Concomitant]
     Dosage: 20 MG
  5. IRON [Concomitant]
  6. AMBIEN [Concomitant]
  7. VITAMIN D [Concomitant]
  8. PREVACID [Concomitant]

REACTIONS (2)
  - Pericardial haemorrhage [Unknown]
  - Pericardial haemorrhage [Unknown]
